FAERS Safety Report 8986071 (Version 1)
Quarter: 2012Q4

REPORT INFORMATION
  Report Type: Spontaneous
  Country: US (occurrence: None)
  Receive Date: 20121218
  Receipt Date: 20121218
  Transmission Date: 20130627
  Serious: Yes (Hospitalization)
  Sender: FDA-Public Use
  Company Number: FK201203857

PATIENT
  Age: 58 Year
  Sex: Female

DRUGS (3)
  1. FLUOROURACIL [Suspect]
     Route: 042
  2. LEUCOVORIN [Suspect]
     Route: 042
  3. OXALIPLATIN (OXALIPLATIN) [Suspect]
     Route: 042

REACTIONS (2)
  - Road traffic accident [None]
  - Subdural haemorrhage [None]
